FAERS Safety Report 17728323 (Version 2)
Quarter: 2020Q2

REPORT INFORMATION
  Report Type: Report from Study
  Country: US (occurrence: US)
  Receive Date: 20200430
  Receipt Date: 20200525
  Transmission Date: 20200714
  Serious: Yes (Other)
  Sender: FDA-Public Use
  Company Number: US-AMGEN-USASP2020067808

PATIENT
  Age: 75 Year
  Sex: Female

DRUGS (5)
  1. PROLIA [Suspect]
     Active Substance: DENOSUMAB
     Indication: OSTEOPOROSIS POSTMENOPAUSAL
     Dosage: 60 MILLIGRAM, Q6MO
     Route: 065
     Dates: start: 20190916
  2. DOXEPIN [Concomitant]
     Active Substance: DOXEPIN
     Indication: MULTIPLE ALLERGIES
     Dosage: 10 MILLIGRAM
     Dates: start: 20200305
  3. CALCIUM + VITAMIN D3 [Concomitant]
     Active Substance: CALCIUM CARBONATE\CHOLECALCIFEROL
     Dosage: UNK
  4. DOXEPIN [Concomitant]
     Active Substance: DOXEPIN
     Dosage: 25 MILLIGRAM
     Dates: start: 20200305
  5. ATORVASTATIN [Suspect]
     Active Substance: ATORVASTATIN
     Indication: PRODUCT USED FOR UNKNOWN INDICATION
     Dosage: UNK
     Route: 065
     Dates: end: 2020

REACTIONS (6)
  - Blood potassium decreased [Unknown]
  - Rash [Not Recovered/Not Resolved]
  - Peripheral swelling [Unknown]
  - Acrochordon excision [Unknown]
  - Eczema nummular [Unknown]
  - Urticaria [Unknown]

NARRATIVE: CASE EVENT DATE: 201911
